FAERS Safety Report 4876738-9 (Version None)
Quarter: 2005Q4

REPORT INFORMATION
  Report Type: 
  Country: None (occurrence: None)
  Receive Date: 20051206
  Receipt Date: 20050329
  Transmission Date: 20060501
  Serious: No
  Sender: FDA-Public Use
  Company Number: USA050188916

PATIENT
  Age: 15 Year
  Sex: Female
  Weight: 59 kg

DRUGS (1)
  1. CYMBALTA [Suspect]
     Indication: DEPRESSION
     Dosage: 30 MG DAY

REACTIONS (1)
  - BIPOLAR I DISORDER [None]
